FAERS Safety Report 15736776 (Version 1)
Quarter: 2018Q4

REPORT INFORMATION
  Report Type: Spontaneous
  Country: JP (occurrence: JP)
  Receive Date: 20181218
  Receipt Date: 20181218
  Transmission Date: 20190205
  Serious: Yes (Other)
  Sender: FDA-Public Use
  Company Number: JP-LUNDBECK-DKLU2023771

PATIENT
  Age: 6 Year
  Sex: Male

DRUGS (6)
  1. SABRIL [Suspect]
     Active Substance: VIGABATRIN
     Dosage: REGIMEN 2
     Route: 048
     Dates: start: 20161228, end: 20170601
  2. DEPAKENE [Concomitant]
     Active Substance: VALPROIC ACID
     Indication: INFANTILE SPASMS
     Route: 065
     Dates: start: 2013
  3. SABRIL [Suspect]
     Active Substance: VIGABATRIN
     Indication: INFANTILE SPASMS
     Route: 048
     Dates: start: 20161118
  4. RUFINAMIDE [Concomitant]
     Active Substance: RUFINAMIDE
     Indication: INFANTILE SPASMS
     Route: 065
     Dates: start: 201406, end: 20170112
  5. SODIUM PICOSULFATE [Concomitant]
     Active Substance: SODIUM PICOSULFATE
     Indication: PRODUCT USED FOR UNKNOWN INDICATION
     Route: 065
     Dates: start: 20170406
  6. SABRIL [Suspect]
     Active Substance: VIGABATRIN
     Dosage: REGIMEN 2
     Route: 048

REACTIONS (2)
  - Retinogram abnormal [Unknown]
  - Agitation [Not Recovered/Not Resolved]

NARRATIVE: CASE EVENT DATE: 20161118
